FAERS Safety Report 24559033 (Version 1)
Quarter: 2024Q4

REPORT INFORMATION
  Report Type: Report from Study
  Country: US (occurrence: US)
  Receive Date: 20241029
  Receipt Date: 20241029
  Transmission Date: 20250115
  Serious: Yes (Hospitalization, Other)
  Sender: ALEXION PHARMACEUTICALS
  Company Number: US-ASTRAZENECA-202410USA002727US

PATIENT
  Age: 55 Year

DRUGS (1)
  1. FASENRA [Suspect]
     Active Substance: BENRALIZUMAB
     Indication: Asthma
     Dosage: 30 MILLIGRAM, Q8W

REACTIONS (3)
  - Gastrointestinal disorder [Recovered/Resolved]
  - Facial discomfort [Recovered/Resolved]
  - Intestinal obstruction [Recovered/Resolved]
